FAERS Safety Report 7883196-9 (Version None)
Quarter: 2011Q4

REPORT INFORMATION
  Report Type: 
  Country: None (occurrence: None)
  Receive Date: 20111101
  Receipt Date: 20111101
  Transmission Date: 20120403
  Serious: Yes (Hospitalization)
  Sender: FDA-Public Use
  Company Number: None

PATIENT
  Age: 35 Year
  Sex: Female
  Weight: 74.1 kg

DRUGS (1)
  1. IOPROMIDE [Suspect]
     Indication: ABDOMEN SCAN
     Dosage: ONCE IV
     Route: 042
     Dates: start: 20110131, end: 20110131

REACTIONS (3)
  - SYNCOPE [None]
  - BRADYCARDIA [None]
  - HYPOTENSION [None]
